FAERS Safety Report 5704200-X (Version None)
Quarter: 2008Q2

REPORT INFORMATION
  Report Type: 
  Country: None (occurrence: None)
  Receive Date: 20080409
  Receipt Date: 20080331
  Transmission Date: 20081010
  Serious: Yes (Other)
  Sender: FDA-Public Use
  Company Number: 18206

PATIENT
  Age: 8 Year
  Sex: Female
  Weight: 26 kg

DRUGS (6)
  1. METHOTREXATE [Suspect]
     Indication: JUVENILE ARTHRITIS
     Dosage: 15 MG WEEKLY IV
     Route: 042
     Dates: start: 20071224, end: 20071224
  2. METHOTREXATE [Suspect]
     Indication: UVEITIS
     Dosage: 15 MG WEEKLY IV
     Route: 042
     Dates: start: 20071224, end: 20071224
  3. METHOTREXATE [Suspect]
     Indication: JUVENILE ARTHRITIS
     Dosage: 15 MG WEEKLY IV
     Route: 042
     Dates: start: 20080102, end: 20080102
  4. METHOTREXATE [Suspect]
     Indication: UVEITIS
     Dosage: 15 MG WEEKLY IV
     Route: 042
     Dates: start: 20080102, end: 20080102
  5. METHOTREXATE [Suspect]
     Indication: JUVENILE ARTHRITIS
     Dosage: 15 MG WEEKLY IV
     Route: 042
     Dates: start: 20000801, end: 20080102
  6. METHOTREXATE [Suspect]
     Indication: UVEITIS
     Dosage: 15 MG WEEKLY IV
     Route: 042
     Dates: start: 20000801, end: 20080102

REACTIONS (7)
  - BLOOD CALCIUM DECREASED [None]
  - BLOOD MAGNESIUM DECREASED [None]
  - CYANOSIS CENTRAL [None]
  - EYE SWELLING [None]
  - FLUSHING [None]
  - HYPERSENSITIVITY [None]
  - MALAISE [None]
